FAERS Safety Report 8429556-9 (Version None)
Quarter: 2012Q2

REPORT INFORMATION
  Report Type: 
  Country: None (occurrence: None)
  Receive Date: 20120612
  Receipt Date: 20120601
  Transmission Date: 20120825
  Serious: Yes (Other)
  Sender: FDA-Public Use
  Company Number: US-JNJFOC-20120601645

PATIENT
  Age: 43 Year
  Sex: Female
  Weight: 50.8 kg

DRUGS (4)
  1. TYLENOL COLD AND FLU SEVERE COOL BURST [Suspect]
     Indication: UPPER-AIRWAY COUGH SYNDROME
     Dosage: 2 CAPLETS AT A TIME, 12 PILLS IN 13 HOURS
     Route: 048
     Dates: start: 20120529, end: 20120530
  2. TYLENOL COLD AND FLU SEVERE COOL BURST [Suspect]
     Indication: SINUS HEADACHE
     Dosage: 2 CAPLETS AT A TIME, 12 PILLS IN 13 HOURS
     Route: 048
     Dates: start: 20120529, end: 20120530
  3. TYLENOL COLD AND FLU SEVERE COOL BURST [Suspect]
     Indication: OROPHARYNGEAL PAIN
     Dosage: 2 CAPLETS AT A TIME, 12 PILLS IN 13 HOURS
     Route: 048
     Dates: start: 20120529, end: 20120530
  4. TYLENOL COLD AND FLU SEVERE COOL BURST [Suspect]
     Indication: DYSPNOEA
     Dosage: 2 CAPLETS AT A TIME, 12 PILLS IN 13 HOURS
     Route: 048
     Dates: start: 20120529, end: 20120530

REACTIONS (5)
  - NAUSEA [None]
  - VOMITING [None]
  - INCORRECT DRUG ADMINISTRATION DURATION [None]
  - DRUG INEFFECTIVE [None]
  - TINNITUS [None]
